FAERS Safety Report 7675973-4 (Version None)
Quarter: 2011Q3

REPORT INFORMATION
  Report Type: 
  Country: None (occurrence: None)
  Receive Date: 20110811
  Receipt Date: 20110808
  Transmission Date: 20111222
  Serious: No
  Sender: FDA-Public Use
  Company Number: US-BIOGENIDEC-2011BI028269

PATIENT
  Age: 66 Year
  Sex: Female

DRUGS (2)
  1. IRON INFUSION [Concomitant]
     Indication: BLOOD IRON DECREASED
  2. TYSABRI [Suspect]
     Indication: MULTIPLE SCLEROSIS
     Route: 042
     Dates: start: 20110726

REACTIONS (4)
  - HEADACHE [None]
  - FATIGUE [None]
  - INFUSION SITE HAEMATOMA [None]
  - BLOOD IRON DECREASED [None]
